FAERS Safety Report 4300047-X (Version None)
Quarter: 2004Q1

REPORT INFORMATION
  Report Type: 
  Country: None (occurrence: None)
  Receive Date: 20040219
  Receipt Date: 20040219
  Transmission Date: 20041129
  Serious: Yes (Death)
  Sender: FDA-Public Use
  Company Number: None

PATIENT
  Age: 80 Year
  Sex: Male
  Weight: 78.0187 kg

DRUGS (9)
  1. SPIRONOLACTONE [Suspect]
     Indication: CARDIAC FAILURE CONGESTIVE
     Dosage: 1 QD PO
     Route: 048
  2. VALSARTAN 80 MG [Suspect]
     Indication: CARDIAC FAILURE CONGESTIVE
     Dosage: 1 QD PO
     Route: 048
  3. VALSARTAN 80 MG [Suspect]
     Indication: HYPERTENSION
     Dosage: 1 QD PO
     Route: 048
  4. FUROSEMIDE [Concomitant]
  5. GABAPENTIN [Concomitant]
  6. ISOSORBIDE DINITRATE [Concomitant]
  7. LOVASTATIN [Concomitant]
  8. GLIPIZIDE [Concomitant]
  9. ASPIRIN [Concomitant]

REACTIONS (6)
  - ACUTE CORONARY SYNDROME [None]
  - ATRIOVENTRICULAR BLOCK SECOND DEGREE [None]
  - CHEST PAIN [None]
  - DYSPNOEA [None]
  - HYPERHIDROSIS [None]
  - HYPERKALAEMIA [None]
